FAERS Safety Report 17345598 (Version 1)
Quarter: 2020Q1

REPORT INFORMATION
  Report Type: Spontaneous
  Country: DE (occurrence: DE)
  Receive Date: 20200129
  Receipt Date: 20200129
  Transmission Date: 20200409
  Serious: Yes (Death, Other)
  Sender: FDA-Public Use
  Company Number: DE-TEVA-2020-DE-1175186

PATIENT
  Age: 55 Year
  Sex: Female
  Weight: 70 kg

DRUGS (2)
  1. FENTANYL. [Suspect]
     Active Substance: FENTANYL
     Dosage: 50 UG/H
     Route: 062
  2. DOXEPIN [Suspect]
     Active Substance: DOXEPIN
     Route: 065

REACTIONS (3)
  - Pulmonary oedema [Unknown]
  - Brain oedema [Unknown]
  - Toxicity to various agents [Fatal]
